FAERS Safety Report 21410443 (Version 1)
Quarter: 2022Q4

REPORT INFORMATION
  Report Type: Spontaneous
  Country: JP (occurrence: JP)
  Receive Date: 20221005
  Receipt Date: 20221005
  Transmission Date: 20230113
  Serious: Yes (Death, Hospitalization, Other)
  Sender: FDA-Public Use
  Company Number: JP-CHUGAI-2022037121

PATIENT
  Age: 67 Year
  Sex: Male
  Weight: 76 kg

DRUGS (2)
  1. TECENTRIQ [Suspect]
     Active Substance: ATEZOLIZUMAB
     Indication: Hepatocellular carcinoma
     Dosage: 1200 MILLIGRAM, ONCE/3WEEKS
     Route: 041
     Dates: start: 20220513, end: 20220624
  2. AVASTIN [Suspect]
     Active Substance: BEVACIZUMAB
     Indication: Hepatocellular carcinoma
     Dosage: 15 MILLIGRAM/KILOGRAM, ONCE/3WEEKS
     Route: 041
     Dates: start: 20220513, end: 20220624

REACTIONS (11)
  - Drug-induced liver injury [Fatal]
  - Acute hepatic failure [Fatal]
  - Spontaneous bacterial peritonitis [Unknown]
  - Blood potassium increased [Unknown]
  - Disseminated intravascular coagulation [Unknown]
  - Renal impairment [Unknown]
  - Hepatopulmonary syndrome [Unknown]
  - Rash [Unknown]
  - Diarrhoea [Unknown]
  - Blood corticotrophin decreased [Unknown]
  - Cortisol decreased [Unknown]

NARRATIVE: CASE EVENT DATE: 20220624
